FAERS Safety Report 4905332-6 (Version None)
Quarter: 2006Q1

REPORT INFORMATION
  Report Type: 
  Country: None (occurrence: None)
  Receive Date: 20060207
  Receipt Date: 20060207
  Transmission Date: 20060701
  Serious: Yes (Death)
  Sender: FDA-Public Use
  Company Number: None

PATIENT
  Age: 79 Year
  Sex: Female
  Weight: 68.0396 kg

DRUGS (1)
  1. ADENOSINE [Suspect]
     Indication: CORONARY ARTERY DISEASE
     Dosage: 29.1       IV DRIP
     Route: 041
     Dates: start: 20060125, end: 20060125

REACTIONS (5)
  - ATRIOVENTRICULAR BLOCK [None]
  - BRADYCARDIA [None]
  - INFUSION RELATED REACTION [None]
  - RESPIRATORY DISTRESS [None]
  - WHEEZING [None]
